FAERS Safety Report 5366521-2 (Version None)
Quarter: 2007Q2

REPORT INFORMATION
  Report Type: 
  Country: None (occurrence: None)
  Receive Date: 20070622
  Receipt Date: 20070615
  Transmission Date: 20071010
  Serious: Yes (Other)
  Sender: FDA-Public Use
  Company Number: US-PFIZER INC-2007049222

PATIENT
  Age: 42 Year
  Sex: Female

DRUGS (1)
  1. SOLU-MEDROL [Suspect]

REACTIONS (1)
  - CHEST PAIN [None]
